FAERS Safety Report 11033812 (Version 1)
Quarter: 2015Q2

REPORT INFORMATION
  Report Type: Report from Study
  Country: US (occurrence: US)
  Receive Date: 20150415
  Receipt Date: 20150415
  Transmission Date: 20150821
  Serious: Yes (Hospitalization)
  Sender: FDA-Public Use
  Company Number: US-009507513-1504USA009886

PATIENT
  Age: 66 Year
  Sex: Male
  Weight: 101.5 kg

DRUGS (7)
  1. POMALIDOMIDE [Suspect]
     Active Substance: POMALIDOMIDE
     Indication: PLASMA CELL MYELOMA
     Dosage: 4 MG, CYCLICAL (DAYS 1-21) (COMMERCIAL SUPPLY)
     Route: 048
     Dates: start: 20150218, end: 20150409
  2. DEXAMETHASONE. [Suspect]
     Active Substance: DEXAMETHASONE
     Indication: PLASMA CELL MYELOMA
     Dosage: QW. STRENGHT 40MG (COMMERCIAL SUPPLY)
     Route: 048
     Dates: start: 20150218, end: 20150409
  3. ACYCLOVIR. [Concomitant]
     Active Substance: ACYCLOVIR
     Dosage: 1 TABLET, 5 TIMES PER DAY
     Route: 048
  4. SENNA GEN [Concomitant]
     Active Substance: SENNOSIDES
     Indication: CONSTIPATION
     Dosage: 17.2 MG, PRN (2 TABLETS, NIGHTLY)
     Route: 048
  5. PRINIVIL [Concomitant]
     Active Substance: LISINOPRIL
     Dosage: 10 MG, QD (1 TABLET)
     Route: 048
  6. PEMBROLIZUMAB. [Suspect]
     Active Substance: PEMBROLIZUMAB
     Indication: PLASMA CELL MYELOMA
     Dosage: BID. STRENGHT 200MG
     Route: 042
     Dates: start: 20150218, end: 20150401
  7. CRESTOR [Concomitant]
     Active Substance: ROSUVASTATIN CALCIUM
     Dosage: 1 TABLET, QD
     Route: 048

REACTIONS (1)
  - Lung infection [Unknown]

NARRATIVE: CASE EVENT DATE: 20150409
